FAERS Safety Report 5064368-8 (Version None)
Quarter: 2006Q3

REPORT INFORMATION
  Report Type: 
  Country: None (occurrence: None)
  Receive Date: 20060728
  Receipt Date: 20060720
  Transmission Date: 20061208
  Serious: Yes (Hospitalization)
  Sender: FDA-Public Use
  Company Number: FR-JNJFOC-20060603501

PATIENT
  Sex: Male

DRUGS (7)
  1. HALDOL [Suspect]
     Route: 030
  2. HALDOL [Suspect]
     Route: 030
  3. HALDOL [Suspect]
     Indication: PSYCHOTIC DISORDER
     Route: 030
  4. TERCIAN [Concomitant]
     Indication: PSYCHOTIC DISORDER
     Route: 048
  5. DEPAKOTE [Concomitant]
     Indication: AFFECTIVE DISORDER
     Route: 048
  6. SERESTA [Concomitant]
     Route: 048
  7. ATARAX [Concomitant]
     Indication: AGITATION
     Route: 030

REACTIONS (2)
  - MEDICATION ERROR [None]
  - OVERDOSE [None]
